FAERS Safety Report 9434241 (Version 2)
Quarter: 2013Q3

REPORT INFORMATION
  Report Type: Spontaneous
  Country: JP (occurrence: JP)
  Receive Date: 20130801
  Receipt Date: 20130813
  Transmission Date: 20140515
  Serious: Yes (Other)
  Sender: FDA-Public Use
  Company Number: PHHY2013JP080587

PATIENT
  Sex: 0

DRUGS (10)
  1. VOLTAREN [Suspect]
     Indication: GOUT
     Route: 048
     Dates: start: 2007
  2. TEPRENONE [Suspect]
  3. ATRACTYLODES LANCEA RHIZOME W/GINSENG NOS/GLY [Suspect]
  4. POTASSIUM CITRATE W/SODIUM CITRATE [Concomitant]
     Indication: GOUT
     Route: 048
     Dates: start: 2007, end: 201110
  5. ALLOPURINOL [Concomitant]
     Indication: GOUT
     Route: 048
     Dates: start: 2007, end: 201110
  6. REBAMIPIDE [Concomitant]
     Route: 048
     Dates: start: 2007, end: 201110
  7. CEPHARANTHINE [Concomitant]
     Dates: start: 200910, end: 200911
  8. ETODOLAC [Concomitant]
     Route: 048
     Dates: start: 200912, end: 201110
  9. NIZATIDINE [Concomitant]
     Route: 048
     Dates: start: 200912, end: 201110
  10. AROVICS [Concomitant]
     Dates: start: 200910, end: 200911

REACTIONS (4)
  - Autoimmune hepatitis [Recovering/Resolving]
  - Drug-induced liver injury [Recovering/Resolving]
  - Abdominal discomfort [Recovering/Resolving]
  - Hepatic enzyme increased [Recovering/Resolving]
